FAERS Safety Report 11483274 (Version 1)
Quarter: 2015Q3

REPORT INFORMATION
  Report Type: Spontaneous
  Country: US (occurrence: US)
  Receive Date: 20150903
  Receipt Date: 20150903
  Transmission Date: 20151125
  Serious: No
  Sender: FDA-Public Use
  Company Number: US-ELI_LILLY_AND_COMPANY-US201206003013

PATIENT
  Age: 77 Year
  Sex: Female

DRUGS (4)
  1. AMILORIDE [Concomitant]
     Active Substance: AMILORIDE
  2. LOSARTIN [Concomitant]
     Active Substance: LOSARTAN
  3. BYSTOLIC [Concomitant]
     Active Substance: NEBIVOLOL HYDROCHLORIDE
  4. CYMBALTA [Suspect]
     Active Substance: DULOXETINE HYDROCHLORIDE
     Indication: LUMBAR SPINAL STENOSIS
     Dosage: 30 MG, QD

REACTIONS (7)
  - Musculoskeletal pain [Unknown]
  - Somnolence [Unknown]
  - Drug ineffective [Unknown]
  - Hypertension [Unknown]
  - Constipation [Unknown]
  - Gait disturbance [Unknown]
  - Pain in extremity [Unknown]
